FAERS Safety Report 4356006-4 (Version None)
Quarter: 2004Q2

REPORT INFORMATION
  Report Type: 
  Country: None (occurrence: None)
  Receive Date: 20040507
  Receipt Date: 20040507
  Transmission Date: 20050107
  Serious: Yes (Hospitalization)
  Sender: FDA-Public Use
  Company Number: None

PATIENT
  Age: 70 Year
  Sex: Male
  Weight: 55.5 kg

DRUGS (14)
  1. IRINOTECAN HYDROCHLORIDE [Suspect]
  2. LOPERAMIDE HCL [Concomitant]
  3. APREPITANT [Concomitant]
  4. HYDROCODONE/ACETAMINOPHEN [Concomitant]
  5. DARBEPOETIN ALFA [Concomitant]
  6. ATENOLOL [Concomitant]
  7. RABEPRAZOLE SODIUM [Concomitant]
  8. SIMVASTATIN [Concomitant]
  9. TERAZOSIN HCL [Concomitant]
  10. METOCLOPRAMIDE [Concomitant]
  11. FILGRASTIN [Concomitant]
  12. LISINOPRIL [Concomitant]
  13. PANCRELIPASE [Concomitant]
  14. FENTANYL [Concomitant]

REACTIONS (4)
  - DIARRHOEA [None]
  - NAUSEA [None]
  - NEUTROPENIA [None]
  - VOMITING [None]
